FAERS Safety Report 20188672 (Version 1)
Quarter: 2021Q4

REPORT INFORMATION
  Report Type: Spontaneous
  Country: US (occurrence: US)
  Receive Date: 20211215
  Receipt Date: 20211215
  Transmission Date: 20220304
  Serious: No
  Sender: FDA-Public Use
  Company Number: US-RECORDATI-2021005169

PATIENT

DRUGS (5)
  1. SIGNIFOR LAR [Suspect]
     Active Substance: PASIREOTIDE PAMOATE
     Indication: Pituitary tumour
     Dosage: 10 MILLIGRAM, EVERY 28 DAYS
     Route: 030
     Dates: start: 20211129
  2. DESMOPRESSIN [Concomitant]
     Active Substance: DESMOPRESSIN
     Indication: Diabetes mellitus
  3. ATORVASTATIN [Concomitant]
     Active Substance: ATORVASTATIN
     Indication: Blood cholesterol increased
  4. CLARITIN [Concomitant]
     Active Substance: LORATADINE
     Indication: Hypersensitivity
  5. VITAMINS NOS [Concomitant]
     Active Substance: VITAMINS
     Indication: Product used for unknown indication

REACTIONS (7)
  - Skin disorder [Recovering/Resolving]
  - Feeling abnormal [Not Recovered/Not Resolved]
  - Skin mass [Recovering/Resolving]
  - Vision blurred [Unknown]
  - Excessive eye blinking [Unknown]
  - Face oedema [Not Recovered/Not Resolved]
  - Abdominal distension [Not Recovered/Not Resolved]

NARRATIVE: CASE EVENT DATE: 20210101
